FAERS Safety Report 11377267 (Version 2)
Quarter: 2015Q3

REPORT INFORMATION
  Report Type: Spontaneous
  Country: US (occurrence: US)
  Receive Date: 20150811
  Receipt Date: 20150903
  Transmission Date: 20151125
  Serious: No
  Sender: FDA-Public Use
  Company Number: US-ELI_LILLY_AND_COMPANY-US200811000088

PATIENT
  Sex: Female

DRUGS (3)
  1. HUMULIN 70/30 [Suspect]
     Active Substance: INSULIN HUMAN
     Dosage: 40 U, EACH MORNING
  2. HUMALOG [Suspect]
     Active Substance: INSULIN LISPRO
     Dosage: UNK, AS NEEDED
  3. HUMULIN 70/30 [Suspect]
     Active Substance: INSULIN HUMAN
     Dosage: 25 U, EACH EVENING

REACTIONS (6)
  - Blood glucose increased [Not Recovered/Not Resolved]
  - Drug ineffective [Unknown]
  - Visual acuity reduced [Unknown]
  - Confusional state [Unknown]
  - Hyperhidrosis [Unknown]
  - Dizziness [Unknown]

NARRATIVE: CASE EVENT DATE: 20081029
